FAERS Safety Report 9361702 (Version 1)
Quarter: 2013Q2

REPORT INFORMATION
  Report Type: Report from Study
  Country: US (occurrence: US)
  Receive Date: 20130621
  Receipt Date: 20130621
  Transmission Date: 20140414
  Serious: Yes (Hospitalization, Other)
  Sender: FDA-Public Use
  Company Number: PHEH2013US013360

PATIENT
  Sex: Female

DRUGS (9)
  1. TASIGNA [Suspect]
     Indication: ACUTE MYELOID LEUKAEMIA
     Dosage: 300 MG, Q12H
     Route: 048
     Dates: start: 20100720
  2. ZOCOR [Concomitant]
  3. ZANTAC [Concomitant]
  4. ALLOPURINOL [Concomitant]
  5. CLARITIN [Concomitant]
  6. MVI [Concomitant]
  7. MOTRIN [Concomitant]
  8. PRAVASTATIN [Concomitant]
  9. COLACE [Concomitant]

REACTIONS (2)
  - Cardiac flutter [Not Recovered/Not Resolved]
  - Electrocardiogram QT prolonged [Not Recovered/Not Resolved]
